FAERS Safety Report 10778784 (Version 1)
Quarter: 2015Q1

REPORT INFORMATION
  Report Type: Spontaneous
  Country: PL (occurrence: PL)
  Receive Date: 20150210
  Receipt Date: 20150210
  Transmission Date: 20150721
  Serious: Yes (Death, Other)
  Sender: FDA-Public Use
  Company Number: PL-ACTELION-A-CH2015-112149

PATIENT
  Age: 13 Year
  Sex: Female

DRUGS (2)
  1. STAYVEER [Suspect]
     Active Substance: BOSENTAN\BOSENTAN MONOHYDRATE
     Indication: PULMONARY ARTERIAL HYPERTENSION
     Dosage: UNK
     Route: 048
  2. TADALAFIL [Concomitant]
     Active Substance: TADALAFIL
     Dosage: UNK
     Dates: end: 20141209

REACTIONS (2)
  - Systemic-pulmonary artery shunt [Unknown]
  - Cardiac failure [Fatal]

NARRATIVE: CASE EVENT DATE: 20141209
